FAERS Safety Report 6466141-2 (Version None)
Quarter: 2009Q4

REPORT INFORMATION
  Report Type: 
  Country: None (occurrence: None)
  Receive Date: 20091201
  Receipt Date: 20091201
  Transmission Date: 20100525
  Serious: Yes (Hospitalization, Disabling)
  Sender: FDA-Public Use
  Company Number: None

PATIENT
  Age: 31 Year
  Sex: Female
  Weight: 72.5755 kg

DRUGS (1)
  1. OCELLA TEVA [Suspect]
     Indication: ACNE
     Dosage: 1 A DAY PO
     Route: 048
     Dates: start: 20090117, end: 20090312

REACTIONS (8)
  - ARRHYTHMIA [None]
  - DEPRESSION [None]
  - FREQUENT BOWEL MOVEMENTS [None]
  - GALLBLADDER DISORDER [None]
  - NAUSEA [None]
  - PAIN [None]
  - PULMONARY EMBOLISM [None]
  - PULMONARY INFARCTION [None]
